FAERS Safety Report 13528597 (Version 1)
Quarter: 2017Q2

REPORT INFORMATION
  Report Type: Spontaneous
  Country: US (occurrence: US)
  Receive Date: 20170509
  Receipt Date: 20170509
  Transmission Date: 20170830
  Serious: Yes (Other)
  Sender: FDA-Public Use
  Company Number: US-PFIZER INC-2017197067

PATIENT
  Sex: Female

DRUGS (1)
  1. XELJANZ [Suspect]
     Active Substance: TOFACITINIB CITRATE
     Dosage: 5 MG, 2X/DAY

REACTIONS (16)
  - Dermatitis bullous [Unknown]
  - Oral herpes [Unknown]
  - Joint effusion [Unknown]
  - Arthralgia [Unknown]
  - Joint swelling [Unknown]
  - Hepatitis A [Unknown]
  - Insomnia [Unknown]
  - Synovitis [Unknown]
  - Infection [Unknown]
  - Psoriasis [Unknown]
  - Drug dose omission [Unknown]
  - Pain [Unknown]
  - Dermatitis herpetiformis [Unknown]
  - Fatigue [Unknown]
  - Condition aggravated [Unknown]
  - Headache [Unknown]
